FAERS Safety Report 14339801 (Version 3)
Quarter: 2018Q4

REPORT INFORMATION
  Report Type: Spontaneous
  Country: FR (occurrence: FR)
  Receive Date: 20171230
  Receipt Date: 20181019
  Transmission Date: 20190204
  Serious: Yes (Other)
  Sender: FDA-Public Use
  Company Number: FR-MYLANLABS-2017M1082886

PATIENT
  Age: 31 Year
  Sex: Female
  Weight: 78 kg

DRUGS (4)
  1. STELARA [Suspect]
     Active Substance: USTEKINUMAB
     Indication: PSORIATIC ARTHROPATHY
     Dosage: 45 MG, Q3W
     Route: 058
     Dates: start: 201607
  2. STELARA [Suspect]
     Active Substance: USTEKINUMAB
     Dosage: 45 MG, Q3W, (0.0476 DOSE)
     Route: 058
     Dates: start: 201702
  3. NAPROXEN. [Suspect]
     Active Substance: NAPROXEN
     Indication: PSORIATIC ARTHROPATHY
     Dosage: 550 MG, BID
     Dates: start: 201611
  4. TRAMADOL. [Suspect]
     Active Substance: TRAMADOL
     Indication: PSORIATIC ARTHROPATHY
     Dosage: UNK
     Route: 048
     Dates: start: 201607

REACTIONS (4)
  - Device ineffective [Recovered/Resolved with Sequelae]
  - Inappropriate schedule of product administration [Unknown]
  - Exposure during pregnancy [Recovered/Resolved with Sequelae]
  - Off label use [Unknown]

NARRATIVE: CASE EVENT DATE: 201607
